FAERS Safety Report 9276504 (Version 1)
Quarter: 2012Q4

REPORT INFORMATION
  Report Type: Spontaneous
  Country: ES (occurrence: None)
  Receive Date: 20121109
  Receipt Date: 20121109
  Transmission Date: 20130627
  Serious: Yes (Other)
  Sender: FDA-Public Use
  Company Number: 2011S1000952

PATIENT
  Age: 54 Year
  Sex: Male

DRUGS (10)
  1. CUBICIN [Suspect]
     Indication: BACTEREMIA
     Route: 042
     Dates: start: 20111024, end: 20111031
  2. RANITIDINE [Concomitant]
  3. ACETYLSALICYLIC ACID [Concomitant]
  4. CARDURAN [Concomitant]
  5. FOSRENOL [Concomitant]
  6. ISCOVIR [Concomitant]
  7. LEVEMIR [Concomitant]
  8. CINACALCET HYDROCHLORIDE) [Concomitant]
  9. INSULIN ASPART [Concomitant]
  10. ALL OTHER THERAPEUTIC PRODUCTS [Concomitant]

REACTIONS (2)
  - Headache [None]
  - Musculoskeletal pain [None]
